FAERS Safety Report 8581389-9 (Version None)
Quarter: 2012Q3

REPORT INFORMATION
  Report Type: 
  Country: None (occurrence: None)
  Receive Date: 20120809
  Receipt Date: 20120801
  Transmission Date: 20120928
  Serious: Yes (Other)
  Sender: FDA-Public Use
  Company Number: US-US-EMD SERONO, INC.-7152264

PATIENT
  Sex: Male

DRUGS (1)
  1. REBIF [Suspect]
     Indication: MULTIPLE SCLEROSIS
     Route: 058
     Dates: start: 20120423

REACTIONS (3)
  - CENTRAL NERVOUS SYSTEM LESION [None]
  - LOSS OF CONSCIOUSNESS [None]
  - DIABETES MELLITUS [None]
